FAERS Safety Report 5343996-6 (Version None)
Quarter: 2007Q2

REPORT INFORMATION
  Report Type: 
  Country: None (occurrence: None)
  Receive Date: 20070604
  Receipt Date: 20070528
  Transmission Date: 20071010
  Serious: Yes (Death, Hospitalization)
  Sender: FDA-Public Use
  Company Number: BR-NOVOPROD-264003

PATIENT
  Sex: Male
  Weight: 65 kg

DRUGS (1)
  1. NOVOSEVEN [Suspect]
     Indication: TRAUMATIC HAEMORRHAGE
     Dosage: 2 DOSES
     Route: 042
     Dates: start: 20070527, end: 20070527

REACTIONS (1)
  - SHOCK HAEMORRHAGIC [None]
